FAERS Safety Report 11799710 (Version 4)
Quarter: 2016Q3

REPORT INFORMATION
  Report Type: Report from Study
  Country: BR (occurrence: BR)
  Receive Date: 20151203
  Receipt Date: 20160830
  Transmission Date: 20161109
  Serious: Yes (Hospitalization, Other)
  Sender: FDA-Public Use
  Company Number: PHHY2015BR157538

PATIENT
  Sex: Female
  Weight: 53 kg

DRUGS (4)
  1. EXJADE [Suspect]
     Active Substance: DEFERASIROX
     Dosage: 1500 MG, ONCE DAILY
     Route: 065
     Dates: start: 201607
  2. GEN-HYDROXYUREA [Concomitant]
     Indication: PRODUCT USED FOR UNKNOWN INDICATION
     Route: 065
  3. EXJADE [Suspect]
     Active Substance: DEFERASIROX
     Indication: THALASSAEMIA BETA
     Dosage: 3 DF OF 500 MG, UNK
     Route: 065
  4. EXJADE [Suspect]
     Active Substance: DEFERASIROX
     Indication: SICKLE CELL ANAEMIA
     Dosage: 2 DF OF 500 MG, UNK
     Route: 065

REACTIONS (14)
  - Arthralgia [Unknown]
  - Cardiac siderosis [Unknown]
  - Pneumonia [Unknown]
  - Weight decreased [Unknown]
  - Hepatic siderosis [Unknown]
  - Vomiting [Unknown]
  - Blood iron increased [Unknown]
  - Osteonecrosis [Unknown]
  - Device dislocation [Recovered/Resolved]
  - Pyrexia [Unknown]
  - Blood pressure decreased [Unknown]
  - Dysstasia [Unknown]
  - Malaise [Unknown]
  - Pain in extremity [Unknown]
